FAERS Safety Report 15221859 (Version 2)
Quarter: 2018Q3

REPORT INFORMATION
  Report Type: Report from Study
  Country: SK (occurrence: SK)
  Receive Date: 20180731
  Receipt Date: 20180802
  Transmission Date: 20181010
  Serious: Yes (Life-Threatening, Hospitalization)
  Sender: FDA-Public Use
  Company Number: PHHO2018SK006336

PATIENT
  Age: 72 Year
  Sex: Male
  Weight: 96 kg

DRUGS (11)
  1. FUROSEMID [Concomitant]
     Active Substance: FUROSEMIDE
     Indication: HYPERTENSION
     Dosage: 40 MG, QOD
     Route: 048
     Dates: start: 20160608
  2. EGILOK [Suspect]
     Active Substance: METOPROLOL TARTRATE
     Indication: HYPERTENSION
     Dosage: 25 MG, QD
     Route: 048
     Dates: start: 20160318, end: 20180514
  3. EPLERENONE. [Concomitant]
     Active Substance: EPLERENONE
     Indication: HYPERTENSION
     Dosage: 25 MG, QD
     Route: 048
     Dates: start: 20160608, end: 20180514
  4. BLINDED ENALAPRIL [Suspect]
     Active Substance: ENALAPRIL
     Indication: CARDIAC FAILURE
     Dosage: CODE NOT BROKEN
     Route: 048
     Dates: start: 20180115
  5. WARFARIN [Concomitant]
     Active Substance: WARFARIN
     Indication: ATRIAL FIBRILLATION
     Dosage: 3 MG, QD
     Route: 048
     Dates: start: 20150828
  6. ATORVASTATIN [Concomitant]
     Active Substance: ATORVASTATIN
     Indication: HYPERLIPIDAEMIA
     Dosage: 80 MG, QD
     Route: 048
     Dates: start: 20120807
  7. DIOVAN [Suspect]
     Active Substance: VALSARTAN
     Indication: CARDIAC FAILURE
     Dosage: CODE NOT BROKEN
     Route: 048
     Dates: start: 20180115
  8. BLINDED NO TREATMENT RECEIVED [Suspect]
     Active Substance: INVESTIGATIONAL PRODUCT
     Indication: CARDIAC FAILURE
     Dosage: CODE NOT BROKEN
     Route: 048
     Dates: start: 20180115
  9. CORDARONE [Suspect]
     Active Substance: AMIODARONE HYDROCHLORIDE
     Indication: ATRIAL FIBRILLATION
     Dosage: 200 MG, QD
     Route: 048
     Dates: start: 2015, end: 20180514
  10. ACIDUM FOLICUM [Concomitant]
     Active Substance: FOLIC ACID
     Indication: LIVER DISORDER
     Dosage: 10 MG, QD
     Route: 048
     Dates: start: 20160920
  11. BLINDED LCZ696 [Suspect]
     Active Substance: SACUBITRIL\VALSARTAN
     Indication: CARDIAC FAILURE
     Dosage: CODE NOT BROKEN
     Route: 048
     Dates: start: 20180115

REACTIONS (1)
  - Sinus node dysfunction [Not Recovered/Not Resolved]

NARRATIVE: CASE EVENT DATE: 20180515
